FAERS Safety Report 6126310-8 (Version None)
Quarter: 2009Q1

REPORT INFORMATION
  Report Type: 
  Country: None (occurrence: None)
  Receive Date: 20090320
  Receipt Date: 20090313
  Transmission Date: 20090719
  Serious: Yes (Hospitalization)
  Sender: FDA-Public Use
  Company Number: JP-MERCK-0902USA03639

PATIENT
  Age: 77 Year
  Sex: Female

DRUGS (5)
  1. PEPCID RPD [Suspect]
     Indication: GASTROENTERITIS
     Route: 048
     Dates: start: 20090210, end: 20090210
  2. PLETAL [Concomitant]
     Route: 048
     Dates: start: 20081003
  3. LIVALO [Concomitant]
     Route: 048
  4. VASOLAN [Concomitant]
     Route: 048
  5. MYSLEE [Concomitant]
     Route: 048

REACTIONS (3)
  - BUNDLE BRANCH BLOCK RIGHT [None]
  - ELECTROCARDIOGRAM T WAVE INVERSION [None]
  - HYPONATRAEMIA [None]
